FAERS Safety Report 5498226-1 (Version None)
Quarter: 2007Q4

REPORT INFORMATION
  Report Type: 
  Country: None (occurrence: None)
  Receive Date: 20071025
  Receipt Date: 20070416
  Transmission Date: 20080405
  Serious: Yes (Other)
  Sender: FDA-Public Use
  Company Number: A0647420A

PATIENT
  Age: 80 Year
  Sex: Male

DRUGS (11)
  1. ADVAIR DISKUS 100/50 [Suspect]
     Indication: DRUG USE FOR UNKNOWN INDICATION
     Dosage: 1PUFF TWICE PER DAY
     Route: 055
  2. SPIRIVA [Concomitant]
  3. ALBUTEROL [Concomitant]
  4. DIOVAN [Concomitant]
  5. FUROSEMIDE [Concomitant]
  6. FINASTERIDE [Concomitant]
  7. VYTORIN [Concomitant]
  8. TOPROL-XL [Concomitant]
  9. ASPIRIN [Concomitant]
  10. FLOMAX [Concomitant]
  11. OXYGEN [Concomitant]

REACTIONS (2)
  - CHEST PAIN [None]
  - PNEUMONIA [None]
